FAERS Safety Report 19081280 (Version 1)
Quarter: 2021Q1

REPORT INFORMATION
  Report Type: Spontaneous
  Country: RU (occurrence: RU)
  Receive Date: 20210331
  Receipt Date: 20210331
  Transmission Date: 20210420
  Serious: Yes (Hospitalization, Other)
  Sender: FDA-Public Use
  Company Number: RU-VALIDUS PHARMACEUTICALS LLC-RU-2021VAL001077

PATIENT

DRUGS (1)
  1. FUROSEMIDE. [Suspect]
     Active Substance: FUROSEMIDE
     Indication: PRODUCT USED FOR UNKNOWN INDICATION
     Dosage: UNK, PRN
     Route: 065

REACTIONS (15)
  - Vomiting [Recovered/Resolved]
  - Nausea [Recovered/Resolved]
  - Renal tubular necrosis [Recovered/Resolved]
  - Urate nephropathy [Recovered/Resolved]
  - Headache [Recovered/Resolved]
  - Acute kidney injury [Recovered/Resolved]
  - Peripheral swelling [Recovered/Resolved]
  - Hyperuricaemia [Recovered/Resolved]
  - Oedematous kidney [Recovered/Resolved]
  - Lymphocytic infiltration [Recovered/Resolved]
  - Metabolic nephropathy [Recovered/Resolved]
  - Tubulointerstitial nephritis [Recovered/Resolved]
  - Periorbital swelling [Recovered/Resolved]
  - Arthralgia [Recovered/Resolved]
  - Asthenia [Recovered/Resolved]
